FAERS Safety Report 5535809-4 (Version None)
Quarter: 2007Q4

REPORT INFORMATION
  Report Type: 
  Country: None (occurrence: None)
  Receive Date: 20071206
  Receipt Date: 20071130
  Transmission Date: 20080405
  Serious: Yes (Other)
  Sender: FDA-Public Use
  Company Number: A0696792A

PATIENT
  Age: 7 Month
  Sex: Male

DRUGS (4)
  1. CEFTIN [Suspect]
     Indication: DRUG USE FOR UNKNOWN INDICATION
     Dates: start: 20071127
  2. KEPPRA [Concomitant]
  3. TRILEPTAL [Concomitant]
  4. PREVACID [Concomitant]

REACTIONS (2)
  - CONVULSION [None]
  - DRUG EXPOSURE VIA BREAST MILK [None]
